FAERS Safety Report 6829065-4 (Version None)
Quarter: 2010Q3

REPORT INFORMATION
  Report Type: 
  Country: None (occurrence: None)
  Receive Date: 20100709
  Receipt Date: 20070227
  Transmission Date: 20110219
  Serious: No
  Sender: FDA-Public Use
  Company Number: US-PFIZER INC-2007015834

PATIENT
  Sex: Male

DRUGS (4)
  1. CHANTIX [Suspect]
     Dates: start: 20070221, end: 20070201
  2. TRICOR [Concomitant]
  3. FISH OIL [Concomitant]
  4. ACETYLSALICYLIC ACID [Concomitant]

REACTIONS (4)
  - DIZZINESS [None]
  - DYSGEUSIA [None]
  - GINGIVAL BLEEDING [None]
  - NAUSEA [None]
